FAERS Safety Report 13759305 (Version 11)
Quarter: 2017Q3

REPORT INFORMATION
  Report Type: Report from Study
  Country: DE (occurrence: DE)
  Receive Date: 20170717
  Receipt Date: 20170918
  Transmission Date: 20171127
  Serious: Yes (Life-Threatening, Hospitalization, Other)
  Sender: FDA-Public Use
  Company Number: PHHY2016DE115331

PATIENT
  Age: 9 Year
  Sex: Female
  Weight: 22.54 kg

DRUGS (48)
  1. GLIVEC [Suspect]
     Active Substance: IMATINIB MESYLATE
     Indication: PHILADELPHIA CHROMOSOME POSITIVE
     Dosage: 300 MG, QD
     Route: 048
     Dates: start: 20160616
  2. DOXORUBICIN [Suspect]
     Active Substance: DOXORUBICIN
     Dosage: 24 MG, UNK
     Route: 042
     Dates: start: 20160614
  3. VINCRISTINE [Suspect]
     Active Substance: VINCRISTINE
     Dosage: 1.4 MG, UNK
     Route: 042
     Dates: start: 20160303
  4. VINCRISTINE [Suspect]
     Active Substance: VINCRISTINE
     Dosage: 1.4 MG, UNK
     Route: 042
     Dates: start: 20160310
  5. DAUNORUBICIN [Suspect]
     Active Substance: DAUNORUBICIN
     Dosage: 29 MG, UNK
     Route: 042
     Dates: start: 20150922
  6. DAUNORUBICIN [Suspect]
     Active Substance: DAUNORUBICIN
     Dosage: 29 MG, UNK
     Route: 042
     Dates: start: 20150929
  7. DOXORUBICIN [Suspect]
     Active Substance: DOXORUBICIN
     Indication: PHILADELPHIA CHROMOSOME POSITIVE
     Dosage: 23 MG, UNK
     Route: 042
     Dates: start: 20160303
  8. CYCLOPHOSPHAMIDE. [Suspect]
     Active Substance: CYCLOPHOSPHAMIDE
     Indication: ACUTE LYMPHOCYTIC LEUKAEMIA
     Dosage: 940 MG, UNK
     Route: 042
     Dates: start: 20151014, end: 20151014
  9. CYTARABINE. [Suspect]
     Active Substance: CYTARABINE
     Dosage: 71 MG, UNK
     Route: 042
     Dates: start: 20151023
  10. CYTARABINE. [Suspect]
     Active Substance: CYTARABINE
     Dosage: 71 MG, UNK
     Route: 042
     Dates: start: 20160803, end: 20160806
  11. VINCRISTINE [Suspect]
     Active Substance: VINCRISTINE
     Indication: ACUTE LYMPHOCYTIC LEUKAEMIA
     Dosage: 1.5 MG, UNK
     Route: 042
     Dates: start: 20150908
  12. VINCRISTINE [Suspect]
     Active Substance: VINCRISTINE
     Indication: PHILADELPHIA CHROMOSOME POSITIVE
     Dosage: 1.5 MG, UNK
     Route: 042
     Dates: start: 20150915
  13. PEG/L-ASPARAGINASE [Suspect]
     Active Substance: PEGASPARGASE
     Indication: PHILADELPHIA CHROMOSOME POSITIVE
     Dosage: 2425 IU, UNK
     Route: 042
     Dates: start: 20150926
  14. PEG/L-ASPARAGINASE [Suspect]
     Active Substance: PEGASPARGASE
     Dosage: 900 IU, UNK
     Route: 042
     Dates: start: 20160225, end: 20160225
  15. IFOSFAMIDE. [Suspect]
     Active Substance: IFOSFAMIDE
     Indication: PHILADELPHIA CHROMOSOME POSITIVE
  16. DOXORUBICIN [Suspect]
     Active Substance: DOXORUBICIN
     Indication: ACUTE LYMPHOCYTIC LEUKAEMIA
     Dosage: 23 MG, UNK
     Route: 042
     Dates: start: 20160205
  17. DOXORUBICIN [Suspect]
     Active Substance: DOXORUBICIN
     Dosage: 23 MG, UNK
     Route: 042
     Dates: start: 20160310
  18. DOXORUBICIN [Suspect]
     Active Substance: DOXORUBICIN
     Dosage: 24 MG, UNK
     Route: 042
     Dates: start: 20160623
  19. CYTARABINE. [Suspect]
     Active Substance: CYTARABINE
     Indication: PHILADELPHIA CHROMOSOME POSITIVE
     Dosage: 71 MG, UNK
     Route: 042
     Dates: start: 20151019
  20. CYTARABINE. [Suspect]
     Active Substance: CYTARABINE
     Dosage: 1880 MG, UNK (2 TIMES)
     Route: 042
     Dates: start: 20151214, end: 20151214
  21. VINCRISTINE [Suspect]
     Active Substance: VINCRISTINE
     Dosage: 1.5 MG, UNK
     Route: 042
     Dates: start: 20150929
  22. VINCRISTINE [Suspect]
     Active Substance: VINCRISTINE
     Dosage: 1.4 MG, UNK
     Route: 042
     Dates: start: 20160707
  23. VINCRISTINE [Suspect]
     Active Substance: VINCRISTINE
     Dosage: 1.4 MG, UNK
     Route: 042
     Dates: start: 20160714
  24. GLIVEC [Suspect]
     Active Substance: IMATINIB MESYLATE
     Indication: ACUTE LYMPHOCYTIC LEUKAEMIA
     Dosage: 300 MG, QD
     Route: 048
     Dates: start: 20150915, end: 20160608
  25. CYCLOPHOSPHAMIDE. [Suspect]
     Active Substance: CYCLOPHOSPHAMIDE
     Dosage: 950 MG, UNK
     Route: 042
     Dates: start: 20160801, end: 20160806
  26. DAUNORUBICIN [Suspect]
     Active Substance: DAUNORUBICIN
     Indication: PHILADELPHIA CHROMOSOME POSITIVE
     Dosage: 29 MG, UNK
     Route: 042
     Dates: start: 20150915
  27. PEG/L-ASPARAGINASE [Suspect]
     Active Substance: PEGASPARGASE
     Dosage: 960 IU, UNK
     Route: 042
     Dates: start: 20160623, end: 20160623
  28. METHOTREXATE. [Suspect]
     Active Substance: METHOTREXATE
     Indication: PHILADELPHIA CHROMOSOME POSITIVE
     Dosage: 4500 MG, QD (1 APPLICATION ABOUT 24 H)
     Route: 042
     Dates: start: 20160105, end: 20160106
  29. CYCLOPHOSPHAMIDE. [Suspect]
     Active Substance: CYCLOPHOSPHAMIDE
     Dosage: 930 MG, UNK
     Route: 042
     Dates: start: 20160407, end: 20160407
  30. CYTARABINE. [Suspect]
     Active Substance: CYTARABINE
     Indication: ACUTE LYMPHOCYTIC LEUKAEMIA
     Dosage: 71 MG, UNK
     Route: 042
     Dates: start: 20151016
  31. VINCRISTINE [Suspect]
     Active Substance: VINCRISTINE
     Dosage: 1.4 MG, UNK
     Route: 042
     Dates: start: 20160319
  32. PEG/L-ASPARAGINASE [Suspect]
     Active Substance: PEGASPARGASE
     Indication: ACUTE LYMPHOCYTIC LEUKAEMIA
     Dosage: 2425 IU, UNK
     Route: 042
     Dates: start: 20150912
  33. METHOTREXATE. [Suspect]
     Active Substance: METHOTREXATE
     Indication: ACUTE LYMPHOCYTIC LEUKAEMIA
     Dosage: 4700 MG, UNK
     Route: 042
     Dates: start: 20151210, end: 20151211
  34. CYTARABINE. [Suspect]
     Active Substance: CYTARABINE
     Dosage: 70 MG, UNK
     Route: 042
     Dates: start: 20160409, end: 20160412
  35. CYTARABINE. [Suspect]
     Active Substance: CYTARABINE
     Dosage: 71 MG, UNK
     Route: 042
     Dates: start: 20160824, end: 20160827
  36. DAUNORUBICIN [Suspect]
     Active Substance: DAUNORUBICIN
     Indication: ACUTE LYMPHOCYTIC LEUKAEMIA
     Dosage: 29 MG, UNK
     Route: 042
     Dates: start: 20150908
  37. IFOSFAMIDE. [Suspect]
     Active Substance: IFOSFAMIDE
     Indication: ACUTE LYMPHOCYTIC LEUKAEMIA
     Dosage: 720 MG, UNK
     Route: 042
     Dates: start: 20160606, end: 20160608
  38. DOXORUBICIN [Suspect]
     Active Substance: DOXORUBICIN
     Dosage: 24 MG, UNK
     Route: 042
     Dates: start: 20160630
  39. DOXORUBICIN [Suspect]
     Active Substance: DOXORUBICIN
     Dosage: 24 MG, UNK
     Route: 042
     Dates: start: 20160707
  40. VINCRISTINE [Suspect]
     Active Substance: VINCRISTINE
     Dosage: 1.5 MG, UNK
     Route: 042
     Dates: start: 20150922
  41. DAUNORUBICIN [Suspect]
     Active Substance: DAUNORUBICIN
     Dosage: 27 MG, QD (1 APPLICATION ABOUT 24 H)
     Route: 042
     Dates: start: 20160109, end: 20160110
  42. DOXORUBICIN [Suspect]
     Active Substance: DOXORUBICIN
     Dosage: 23 MG, UNK
     Route: 042
     Dates: start: 20160319
  43. CYCLOPHOSPHAMIDE. [Suspect]
     Active Substance: CYCLOPHOSPHAMIDE
     Indication: PHILADELPHIA CHROMOSOME POSITIVE
     Dosage: 188 MG, UNK (5 APPLICATIONS TO 188 MG)
     Route: 042
     Dates: start: 20151211, end: 20151213
  44. CYTARABINE. [Suspect]
     Active Substance: CYTARABINE
     Dosage: 71 MG, UNK
     Route: 042
     Dates: start: 20151026
  45. CYTARABINE. [Suspect]
     Active Substance: CYTARABINE
     Dosage: 70 MG, UNK
     Route: 042
     Dates: start: 20160416, end: 20160419
  46. VINCRISTINE [Suspect]
     Active Substance: VINCRISTINE
     Dosage: 1.4 MG, UNK
     Route: 042
     Dates: start: 20160225
  47. VINCRISTINE [Suspect]
     Active Substance: VINCRISTINE
     Dosage: 1.4 MG, UNK
     Route: 042
     Dates: start: 20160623
  48. VINCRISTINE [Suspect]
     Active Substance: VINCRISTINE
     Dosage: 1.4 MG, UNK
     Route: 042
     Dates: start: 20160630

REACTIONS (15)
  - Neutropenia [Recovered/Resolved]
  - Febrile neutropenia [Recovered/Resolved]
  - Neutropenia [Recovered/Resolved]
  - Febrile neutropenia [Recovered/Resolved]
  - Parotitis [Recovered/Resolved]
  - Neutropenia [Recovered/Resolved]
  - Upper respiratory tract infection [Recovered/Resolved]
  - Febrile neutropenia [Recovered/Resolved]
  - Febrile neutropenia [Recovered/Resolved]
  - Febrile neutropenia [Recovered/Resolved]
  - Parainfluenzae virus infection [Recovered/Resolved]
  - Neutropenia [Recovered/Resolved]
  - Neutropenia [Recovered/Resolved]
  - Febrile neutropenia [Recovered/Resolved]
  - Febrile neutropenia [Recovered/Resolved]

NARRATIVE: CASE EVENT DATE: 20150919
